FAERS Safety Report 19222324 (Version 1)
Quarter: 2021Q2

REPORT INFORMATION
  Report Type: Spontaneous
  Country: US (occurrence: US)
  Receive Date: 20210506
  Receipt Date: 20210506
  Transmission Date: 20210717
  Serious: No
  Sender: FDA-Public Use
  Company Number: US-BEH-2021131093

PATIENT
  Sex: Female

DRUGS (1)
  1. HIZENTRA [Suspect]
     Active Substance: HUMAN IMMUNOGLOBULIN G
     Indication: HYPOGAMMAGLOBULINAEMIA
     Dosage: 15 GRAM, QW
     Route: 058
     Dates: start: 20190531

REACTIONS (4)
  - Pruritus [Unknown]
  - Abdominal pain upper [Unknown]
  - Recalled product administered [Unknown]
  - Erythema [Unknown]
